APPROVED DRUG PRODUCT: SUCCINYLCHOLINE CHLORIDE
Active Ingredient: SUCCINYLCHOLINE CHLORIDE
Strength: 20MG/ML
Dosage Form/Route: INJECTABLE;INJECTION
Application: A211346 | Product #001 | TE Code: AP
Applicant: FRESENIUS KABI USA LLC
Approved: Nov 20, 2020 | RLD: No | RS: No | Type: RX